FAERS Safety Report 5284051-3 (Version None)
Quarter: 2007Q2

REPORT INFORMATION
  Report Type: 
  Country: None (occurrence: None)
  Receive Date: 20070402
  Receipt Date: 20070321
  Transmission Date: 20071010
  Serious: Yes (Other)
  Sender: FDA-Public Use
  Company Number: GB-PFIZER INC-2007024257

PATIENT
  Age: 65 Year
  Sex: Female
  Weight: 42.5 kg

DRUGS (4)
  1. ATORVASTATIN CALCIUM [Suspect]
     Indication: BLOOD CHOLESTEROL INCREASED
     Route: 048
     Dates: start: 20070220, end: 20070227
  2. ACETYLSALICYLIC ACID SRT [Concomitant]
     Route: 048
  3. SIMVASTATIN [Concomitant]
     Route: 048
     Dates: start: 20050713, end: 20070220
  4. TEGRETOL [Concomitant]
     Route: 048

REACTIONS (1)
  - CONVULSION [None]
